FAERS Safety Report 19083597 (Version 1)
Quarter: 2021Q2

REPORT INFORMATION
  Report Type: Spontaneous
  Country: FR (occurrence: FR)
  Receive Date: 20210401
  Receipt Date: 20210401
  Transmission Date: 20210717
  Serious: Yes (Other)
  Sender: FDA-Public Use
  Company Number: FR-TEVA-2021-FR-1895928

PATIENT
  Age: 79 Year
  Sex: Male

DRUGS (6)
  1. CITALOPRAM (BROMHYDRATE DE) [Concomitant]
     Active Substance: CITALOPRAM HYDROBROMIDE
  2. LOVENOX [Concomitant]
     Active Substance: ENOXAPARIN SODIUM
  3. KARDEGIC [Concomitant]
     Active Substance: ASPIRIN DL-LYSINE
     Indication: AGITATION
     Dosage: 20MG
     Route: 048
     Dates: start: 201912
  4. ACTISKENAN 5 MG, GELULE [Concomitant]
     Active Substance: MORPHINE SULFATE
  5. HYDROXYZINE (CHLORHYDRATE D) [Suspect]
     Active Substance: HYDROXYZINE HYDROCHLORIDE
     Indication: AGITATION
     Dosage: 25MG
     Route: 048
     Dates: start: 20191225, end: 20191226
  6. MOVICOL [Concomitant]
     Active Substance: POLYETHYLENE GLYCOL 3350\POTASSIUM CHLORIDE\SODIUM BICARBONATE\SODIUM CHLORIDE

REACTIONS (1)
  - Confusional state [Recovered/Resolved]

NARRATIVE: CASE EVENT DATE: 20191226
